FAERS Safety Report 19513291 (Version 3)
Quarter: 2021Q3

REPORT INFORMATION
  Report Type: Spontaneous
  Country: US (occurrence: US)
  Receive Date: 20210709
  Receipt Date: 20210803
  Transmission Date: 20211014
  Serious: Yes (Other)
  Sender: FDA-Public Use
  Company Number: US-BRISTOL-MYERS SQUIBB COMPANY-BMS-2021-066757

PATIENT
  Age: 88 Year
  Sex: Female
  Weight: 40.82 kg

DRUGS (1)
  1. ELIQUIS [Suspect]
     Active Substance: APIXABAN
     Indication: CEREBROVASCULAR ACCIDENT PROPHYLAXIS
     Dosage: 5 MILLIGRAM, BID
     Route: 065

REACTIONS (6)
  - Skin discolouration [Unknown]
  - Limb injury [Unknown]
  - Prescribed overdose [Unknown]
  - Retinal haemorrhage [Unknown]
  - Increased tendency to bruise [Unknown]
  - Weight decreased [Unknown]
